FAERS Safety Report 4284345-4 (Version None)
Quarter: 2004Q1

REPORT INFORMATION
  Report Type: 
  Country: None (occurrence: None)
  Receive Date: 20040130
  Receipt Date: 20040130
  Transmission Date: 20041129
  Serious: Yes (Hospitalization)
  Sender: FDA-Public Use
  Company Number: None

PATIENT
  Age: 67 Year
  Sex: Male
  Weight: 66.6 kg

DRUGS (9)
  1. TENOFOVIR 300MG [Suspect]
     Indication: HIV INFECTION
     Dosage: 1 PO QD
     Route: 048
  2. ATAZANAVIR [Suspect]
  3. ATAZANAVIR [Concomitant]
  4. DIDANOSINE [Concomitant]
  5. LISINOPRIL [Concomitant]
  6. RITONAVIR [Concomitant]
  7. STAVUDINE [Concomitant]
  8. SERTRALINE HCL [Concomitant]
  9. SAQUINAVIR [Concomitant]

REACTIONS (7)
  - ASTHENIA [None]
  - FATIGUE [None]
  - FLUID INTAKE REDUCED [None]
  - HYPOTENSION [None]
  - MARKEDLY REDUCED DIETARY INTAKE [None]
  - PYREXIA [None]
  - RENAL FAILURE ACUTE [None]
